FAERS Safety Report 6784774-0 (Version None)
Quarter: 2010Q2

REPORT INFORMATION
  Report Type: 
  Country: None (occurrence: None)
  Receive Date: 20100622
  Receipt Date: 20100609
  Transmission Date: 20101027
  Serious: Yes (Other)
  Sender: FDA-Public Use
  Company Number: PHHY2010BR35559

PATIENT
  Sex: Female
  Weight: 69.5 kg

DRUGS (1)
  1. GLEEVEC [Suspect]
     Indication: CHRONIC MYELOID LEUKAEMIA
     Dosage: 400 MG
     Route: 048
     Dates: start: 20020903, end: 20100601

REACTIONS (8)
  - ARTHRALGIA [None]
  - CONJUNCTIVAL HAEMORRHAGE [None]
  - ECCHYMOSIS [None]
  - HAEMATOMA [None]
  - HAEMORRHAGE [None]
  - OSTEOARTHRITIS [None]
  - PARAESTHESIA [None]
  - PLATELET COUNT DECREASED [None]
